FAERS Safety Report 5873115-9 (Version None)
Quarter: 2008Q3

REPORT INFORMATION
  Report Type: 
  Country: None (occurrence: None)
  Receive Date: 20080908
  Receipt Date: 20080827
  Transmission Date: 20090109
  Serious: Yes (Other)
  Sender: FDA-Public Use
  Company Number: ES-RANBAXY-2008RR-17629

PATIENT

DRUGS (2)
  1. AMOXICILLINE RPG 1G/5ML POUDRE ET SOLUTION POUR PREPARATION INJECTABLE [Suspect]
     Indication: URINARY TRACT INFECTION
     Route: 042
  2. AMOXICILLINE RPG 1G/5ML POUDRE ET SOLUTION POUR PREPARATION INJECTABLE [Suspect]
     Dosage: 1 G, UNK
     Route: 042
     Dates: start: 20060101

REACTIONS (1)
  - ARTERIOSPASM CORONARY [None]
